FAERS Safety Report 9285337 (Version 1)
Quarter: 2013Q2

REPORT INFORMATION
  Report Type: Spontaneous
  Country: US (occurrence: US)
  Receive Date: 20130513
  Receipt Date: 20130513
  Transmission Date: 20140414
  Serious: Yes (Hospitalization, Other)
  Sender: FDA-Public Use
  Company Number: US-BRISTOL-MYERS SQUIBB COMPANY-18856930

PATIENT
  Age: 63 Year
  Sex: Female
  Weight: 53.06 kg

DRUGS (1)
  1. ORENCIA FOR INJ [Suspect]
     Indication: RHEUMATOID ARTHRITIS
     Dosage: RESUME: APR2012?LAST INFUSION:23APR2013
     Route: 042

REACTIONS (2)
  - Cardiac disorder [Unknown]
  - Melanocytic naevus [Unknown]
